FAERS Safety Report 9723216 (Version 1)
Quarter: 2013Q4

REPORT INFORMATION
  Report Type: Spontaneous
  Country: NO (occurrence: NO)
  Receive Date: 20131202
  Receipt Date: 20131202
  Transmission Date: 20140711
  Serious: Yes (Other)
  Sender: FDA-Public Use
  Company Number: NO-NOVOPROD-393949

PATIENT
  Sex: Female

DRUGS (2)
  1. VAGIFEM [Suspect]
     Indication: CYSTITIS NONINFECTIVE
     Dosage: UNK
     Route: 065
  2. VAGIFEM [Suspect]
     Indication: OFF LABEL USE

REACTIONS (1)
  - Myelodysplastic syndrome [Unknown]
